FAERS Safety Report 7357815-X (Version None)
Quarter: 2011Q1

REPORT INFORMATION
  Report Type: 
  Country: None (occurrence: None)
  Receive Date: 20110309
  Receipt Date: 20110222
  Transmission Date: 20110831
  Serious: Yes (Death, Hospitalization)
  Sender: FDA-Public Use
  Company Number: FK201100369

PATIENT
  Age: 58 Year
  Sex: Male

DRUGS (11)
  1. FLUOROURACIL [Suspect]
     Indication: COLORECTAL CANCER
     Dosage: (1176 MG)
     Route: 042
     Dates: start: 20110201, end: 20110202
  2. GLYME-M2 (GLIMEPRIDE W/METFORMIN) (GLIMEPRIDE W/METFORMIN) [Concomitant]
  3. PAN-D (PANTOVA-D) (PANTOVA-D) [Concomitant]
  4. RAMCOR-H (HYDROCHLOROTHIAZIDE W/RAMIPRIL) (HYDROCHLOROTHIAZIDE W/RAMIP [Concomitant]
  5. REGLAN (METOCLOPRAMIDE) (METOCLOPRAMIDE) [Concomitant]
  6. BENADRYL (DIPHENHYDRAMINE HYDROCHLORIDE) (DIPHENHYDRAMINE HYDROCHLORID [Concomitant]
  7. GRANISETRON (GRANISETRON) [Concomitant]
  8. PRACTIN (CYPROHPTADINE HYDROCHLORIDE) (CYPROHEPTADINE HYDROCHLORIDE) [Concomitant]
  9. DEXAMETHASONE (DEXAMETHASONE) (DEXAMETHASONE) [Concomitant]
  10. OXALIPLATIN [Suspect]
     Indication: COLORECTAL CANCER
     Dosage: (166.69 MG)
     Route: 042
     Dates: start: 20110201, end: 20110202
  11. LEUCOVORIN CALCIUM [Suspect]
     Indication: COLORECTAL CANCER
     Dosage: (329 MG)
     Route: 042
     Dates: start: 20110201, end: 20110202

REACTIONS (7)
  - DYSPNOEA [None]
  - RESTLESSNESS [None]
  - OXYGEN SATURATION DECREASED [None]
  - CIRCULATORY COLLAPSE [None]
  - PULSE ABSENT [None]
  - LOSS OF CONSCIOUSNESS [None]
  - HYPERHIDROSIS [None]
